FAERS Safety Report 13918636 (Version 4)
Quarter: 2017Q4

REPORT INFORMATION
  Report Type: Spontaneous
  Country: CN (occurrence: CN)
  Receive Date: 20170829
  Receipt Date: 20171010
  Transmission Date: 20180320
  Serious: Yes (Hospitalization, Other)
  Sender: FDA-Public Use
  Company Number: CN-TERSERA THERAPEUTICS, LLC-2025282

PATIENT
  Age: 97 Year
  Sex: Male

DRUGS (3)
  1. CASODEX [Suspect]
     Active Substance: BICALUTAMIDE
     Route: 048
     Dates: end: 20170820
  2. ZOLADEX [Suspect]
     Active Substance: GOSERELIN ACETATE
     Indication: PROSTATE CANCER
     Route: 058
     Dates: start: 2016
  3. CASODEX [Suspect]
     Active Substance: BICALUTAMIDE
     Route: 048
     Dates: start: 2016

REACTIONS (10)
  - Blood sodium decreased [Unknown]
  - Hypokalaemia [Unknown]
  - Pyrexia [Unknown]
  - Iodine deficiency [Unknown]
  - Vomiting [Unknown]
  - Decreased appetite [Unknown]
  - Malignant neoplasm progression [Unknown]
  - Calcium deficiency [Unknown]
  - Anaemia [Unknown]
  - General physical health deterioration [Unknown]

NARRATIVE: CASE EVENT DATE: 2016
